FAERS Safety Report 7977067-7 (Version None)
Quarter: 2011Q4

REPORT INFORMATION
  Report Type: 
  Country: None (occurrence: None)
  Receive Date: 20111213
  Receipt Date: 20111108
  Transmission Date: 20120403
  Serious: No
  Sender: FDA-Public Use
  Company Number: US-AMGEN-USASP2011058404

PATIENT
  Age: 61 Year
  Sex: Female

DRUGS (3)
  1. ENBREL [Suspect]
     Indication: PSORIASIS
     Dosage: UNK
     Dates: start: 20110101
  2. ENBREL [Suspect]
     Indication: PSORIATIC ARTHROPATHY
  3. MORPHINE [Concomitant]

REACTIONS (1)
  - HERPES ZOSTER [None]
